FAERS Safety Report 10169182 (Version 1)
Quarter: 2014Q2

REPORT INFORMATION
  Report Type: Spontaneous
  Country: JP (occurrence: JP)
  Receive Date: 20140513
  Receipt Date: 20140513
  Transmission Date: 20141212
  Serious: Yes (Hospitalization, Other)
  Sender: FDA-Public Use
  Company Number: JP-PFIZER INC-2014127258

PATIENT
  Age: 62 Year
  Sex: Female
  Weight: 41.2 kg

DRUGS (2)
  1. METHYLPREDNISOLONE [Suspect]
     Indication: NEUROPATHY PERIPHERAL
     Dosage: 500 MG, DAILY
  2. PREDNISOLONE [Suspect]
     Indication: NEUROPATHY PERIPHERAL
     Dosage: 20 MG, DAILY

REACTIONS (1)
  - Rectal perforation [Recovered/Resolved]
